FAERS Safety Report 10948526 (Version 1)
Quarter: 2015Q1

REPORT INFORMATION
  Report Type: Spontaneous
  Country: US (occurrence: None)
  Receive Date: 20150323
  Receipt Date: 20150323
  Transmission Date: 20150721
  Serious: No
  Sender: FDA-Public Use
  Company Number: None

PATIENT
  Age: 28 Year
  Sex: Female
  Weight: 68.04 kg

DRUGS (2)
  1. MIRENA [Suspect]
     Active Substance: LEVONORGESTREL
     Indication: CONTRACEPTION
     Dosage: IMPLANT
     Dates: start: 20150322
  2. MIRENA [Concomitant]
     Active Substance: LEVONORGESTREL

REACTIONS (5)
  - Haemorrhage [None]
  - Discomfort [None]
  - Activities of daily living impaired [None]
  - Pain [None]
  - Pelvic pain [None]

NARRATIVE: CASE EVENT DATE: 20150322
